FAERS Safety Report 5456482-X (Version None)
Quarter: 2007Q3

REPORT INFORMATION
  Report Type: 
  Country: None (occurrence: None)
  Receive Date: 20070918
  Receipt Date: 20070430
  Transmission Date: 20080115
  Serious: Yes (Other)
  Sender: FDA-Public Use
  Company Number: US-ASTRAZENECA-2006UW25180

PATIENT
  Age: 12 Year
  Sex: Female
  Weight: 59.1 kg

DRUGS (4)
  1. SEROQUEL [Suspect]
     Indication: BIPOLAR DISORDER
     Route: 048
     Dates: start: 20030101, end: 20060101
  2. RISPERDAL [Concomitant]
     Dates: start: 20070101
  3. ABILIFY [Concomitant]
     Dates: start: 20040101, end: 20050101
  4. GEODON [Concomitant]
     Dates: start: 20050101, end: 20060101

REACTIONS (3)
  - SUICIDE ATTEMPT [None]
  - TYPE 2 DIABETES MELLITUS [None]
  - WEIGHT INCREASED [None]
